FAERS Safety Report 9876018 (Version 1)
Quarter: 2014Q1

REPORT INFORMATION
  Report Type: Spontaneous
  Country: IT (occurrence: None)
  Receive Date: 20140204
  Receipt Date: 20140204
  Transmission Date: 20141002
  Serious: No
  Sender: FDA-Public Use
  Company Number: B0965163A

PATIENT
  Age: 24 Year
  Sex: Male

DRUGS (2)
  1. PAROXETINE HYDROCHLORIDE [Suspect]
     Indication: DEPRESSION
     Route: 048
     Dates: start: 20130823, end: 20130828
  2. ALPRAZOLAM (FORMULATION UNKNOWN) (ALPRAZOLAM) [Suspect]
     Indication: PANIC ATTACK
     Route: 048
     Dates: start: 20130808, end: 20130828

REACTIONS (4)
  - Diarrhoea [None]
  - Myalgia [None]
  - Tremor [None]
  - Flushing [None]
